FAERS Safety Report 9405538 (Version 1)
Quarter: 2013Q3

REPORT INFORMATION
  Report Type: Spontaneous
  Country: US (occurrence: US)
  Receive Date: 20130716
  Receipt Date: 20130716
  Transmission Date: 20140515
  Serious: No
  Sender: FDA-Public Use
  Company Number: US-PFIZER INC-2013205299

PATIENT
  Age: 39 Year
  Sex: Female
  Weight: 62.13 kg

DRUGS (2)
  1. METRONIDAZOLE [Suspect]
     Indication: BACTERIAL VAGINOSIS
     Dosage: 500 MG, 2X/DAY
     Route: 048
     Dates: start: 201306, end: 201306
  2. METRONIDAZOLE [Suspect]
     Dosage: 500 MG, 2X/DAY
     Route: 048
     Dates: start: 201307

REACTIONS (1)
  - Drug ineffective [Not Recovered/Not Resolved]
